FAERS Safety Report 7092232-1 (Version None)
Quarter: 2010Q4

REPORT INFORMATION
  Report Type: 
  Country: None (occurrence: None)
  Receive Date: 20101109
  Receipt Date: 20101029
  Transmission Date: 20110411
  Serious: Yes (Death)
  Sender: FDA-Public Use
  Company Number: FR-GENENTECH-309188

PATIENT

DRUGS (2)
  1. RITUXIMAB [Suspect]
     Indication: WEGENER'S GRANULOMATOSIS
     Route: 042
  2. RITUXIMAB [Suspect]
     Route: 042

REACTIONS (4)
  - EAR INFECTION [None]
  - H1N1 INFLUENZA [None]
  - HYPOGAMMAGLOBULINAEMIA [None]
  - SUBCUTANEOUS ABSCESS [None]
